FAERS Safety Report 4643880-7 (Version None)
Quarter: 2005Q2

REPORT INFORMATION
  Report Type: 
  Country: None (occurrence: None)
  Receive Date: 20050425
  Receipt Date: 20050414
  Transmission Date: 20051028
  Serious: Yes (Other)
  Sender: FDA-Public Use
  Company Number: 200512904GDDC

PATIENT
  Age: 58 Year
  Sex: Female
  Weight: 62.7 kg

DRUGS (7)
  1. NICODERM [Suspect]
     Indication: SMOKING CESSATION THERAPY
     Dosage: 21MG PER DAY
     Route: 062
     Dates: start: 20050214
  2. OMEPRAZOLE [Concomitant]
     Dosage: 20MG PER DAY
     Route: 048
  3. LEVOTHYROXINE SODIUM [Concomitant]
     Indication: HYPERTHYROIDISM
     Route: 048
  4. LORAZEPAM [Concomitant]
     Route: 048
     Dates: start: 20030101
  5. DIAZEPAM [Concomitant]
     Route: 048
     Dates: start: 20030101
  6. FLUOXETINE HCL [Concomitant]
  7. ACETYL SALICYLIC ACID USP BAT [Concomitant]
     Dosage: 81MG PER DAY
     Route: 048

REACTIONS (7)
  - BRAIN DAMAGE [None]
  - CEREBROVASCULAR ACCIDENT [None]
  - DIZZINESS [None]
  - DYSGRAPHIA [None]
  - HYPOAESTHESIA [None]
  - INTENTIONAL MISUSE [None]
  - TRANSIENT ISCHAEMIC ATTACK [None]
